FAERS Safety Report 25622837 (Version 1)
Quarter: 2025Q3

REPORT INFORMATION
  Report Type: Spontaneous
  Country: EU (occurrence: EU)
  Receive Date: 20250730
  Receipt Date: 20250730
  Transmission Date: 20251021
  Serious: Yes (Other)
  Sender: NOVO NORDISK
  Company Number: EU-NOVOPROD-1481042

PATIENT
  Age: 5 Year

DRUGS (1)
  1. NORDITROPIN [Suspect]
     Active Substance: SOMATROPIN
     Indication: Bloom syndrome
     Dosage: 0.1 IU/KG, QD
     Route: 058

REACTIONS (2)
  - B-cell lymphoma [Recovering/Resolving]
  - Product use in unapproved indication [Recovered/Resolved]
